FAERS Safety Report 4640697-4 (Version None)
Quarter: 2005Q2

REPORT INFORMATION
  Report Type: 
  Country: None (occurrence: None)
  Receive Date: 20050419
  Receipt Date: 20050309
  Transmission Date: 20051028
  Serious: Yes (Other)
  Sender: FDA-Public Use
  Company Number: GBS050417073

PATIENT
  Age: 40 Year
  Sex: Female

DRUGS (1)
  1. STRATTERA [Suspect]
     Indication: ATTENTION DEFICIT/HYPERACTIVITY DISORDER
     Dosage: 40 MG
     Dates: start: 20050101

REACTIONS (5)
  - ANXIETY [None]
  - DEPRESSION [None]
  - PALPITATIONS [None]
  - PANIC ATTACK [None]
  - SUICIDAL IDEATION [None]
